FAERS Safety Report 8482255-X (Version None)
Quarter: 2012Q3

REPORT INFORMATION
  Report Type: 
  Country: None (occurrence: None)
  Receive Date: 20120702
  Receipt Date: 20120625
  Transmission Date: 20120928
  Serious: Yes (Hospitalization)
  Sender: FDA-Public Use
  Company Number: US-INCYTE CORPORATION-2012IN001073

PATIENT
  Sex: Female
  Weight: 66.485 kg

DRUGS (10)
  1. JAKAFI [Suspect]
     Indication: MYELOFIBROSIS
     Dosage: 15 MG, QD
     Route: 048
     Dates: start: 20120216, end: 20120201
  2. PRILOSEC [Concomitant]
     Dosage: 20 MG, QD
  3. COUMADIN [Concomitant]
     Dosage: DOSE ADJUSTED TO INR 2-3
  4. LASIX [Concomitant]
     Indication: FLUID RETENTION
     Dosage: 10 MG, QD
  5. LASIX [Concomitant]
     Dosage: 20 MG, QD
  6. JAKAFI [Suspect]
     Indication: BUDD-CHIARI SYNDROME
     Dosage: 15 MG, BID
     Route: 048
     Dates: start: 20120227, end: 20120301
  7. JAKAFI [Suspect]
     Dosage: 10 MG, BID
     Route: 048
     Dates: start: 20120302, end: 20120308
  8. CALCIUM [Concomitant]
     Dosage: 600 MG, BID
     Route: 048
  9. LACTULOSE [Concomitant]
     Dosage: 30 MG, QD
  10. JAKAFI [Suspect]
     Dosage: 10 MG, BID; PLAN TO INCREASE TO 15 MG BID IN 1 MNTH
     Route: 048
     Dates: start: 20120315, end: 20120530

REACTIONS (8)
  - HYPOXIA [None]
  - DIARRHOEA [None]
  - MENINGITIS CRYPTOCOCCAL [None]
  - BACTERIURIA [None]
  - ATRIAL FIBRILLATION [None]
  - RENAL FAILURE ACUTE [None]
  - CARDIAC MURMUR [None]
  - FLUID OVERLOAD [None]
